FAERS Safety Report 9858563 (Version 1)
Quarter: 2014Q1

REPORT INFORMATION
  Report Type: Spontaneous
  Country: US (occurrence: None)
  Receive Date: 20140130
  Receipt Date: 20140130
  Transmission Date: 20141002
  Serious: Yes (Other)
  Sender: FDA-Public Use
  Company Number: None

PATIENT
  Sex: 0

DRUGS (1)
  1. TARCEVA [Suspect]

REACTIONS (6)
  - Diarrhoea [None]
  - Hyponatraemia [None]
  - Hypokalaemia [None]
  - Blood alkaline phosphatase increased [None]
  - Aspartate aminotransferase abnormal [None]
  - Blood albumin abnormal [None]
